FAERS Safety Report 8059652-X (Version None)
Quarter: 2012Q1

REPORT INFORMATION
  Report Type: 
  Country: None (occurrence: None)
  Receive Date: 20120120
  Receipt Date: 20120112
  Transmission Date: 20120608
  Serious: Yes (Other)
  Sender: FDA-Public Use
  Company Number: PHHY2011JP109473

PATIENT
  Age: 85 Year
  Sex: Female

DRUGS (1)
  1. LAMISIL [Suspect]
     Indication: TINEA PEDIS
     Dosage: UNK
     Route: 048

REACTIONS (2)
  - DEMENTIA [None]
  - CONCOMITANT DISEASE PROGRESSION [None]
